FAERS Safety Report 7718370-5 (Version None)
Quarter: 2011Q3

REPORT INFORMATION
  Report Type: 
  Country: None (occurrence: None)
  Receive Date: 20110830
  Receipt Date: 20110825
  Transmission Date: 20111222
  Serious: Yes (Hospitalization)
  Sender: FDA-Public Use
  Company Number: PHHY2010US31637

PATIENT
  Sex: Female
  Weight: 58.62 kg

DRUGS (2)
  1. EXJADE [Suspect]
     Indication: SICKLE CELL ANAEMIA
     Dosage: 1125 MG DAILY
     Route: 048
     Dates: start: 20070726, end: 20110801
  2. EXJADE [Suspect]
     Indication: IRON OVERLOAD

REACTIONS (5)
  - HAEMORRHOIDS [None]
  - SICKLE CELL ANAEMIA WITH CRISIS [None]
  - HAEMATOCHEZIA [None]
  - ANAEMIA [None]
  - PAIN [None]
